FAERS Safety Report 23562165 (Version 1)
Quarter: 2024Q1

REPORT INFORMATION
  Report Type: Spontaneous
  Country: FR (occurrence: FR)
  Receive Date: 20240226
  Receipt Date: 20240226
  Transmission Date: 20240409
  Serious: Yes (Other)
  Sender: FDA-Public Use
  Company Number: None

PATIENT
  Age: 19 Year
  Sex: Male
  Weight: 57 kg

DRUGS (6)
  1. PAROXETINE [Suspect]
     Active Substance: PAROXETINE
     Indication: Depression
     Dosage: PAROXETINE HYDROCHLORIDE ANHYDROUS
     Route: 048
     Dates: end: 20231208
  2. BRINTELLIX [Concomitant]
     Active Substance: VORTIOXETINE HYDROBROMIDE
     Indication: Product used for unknown indication
     Route: 065
  3. CYAMEMAZINE [Concomitant]
     Active Substance: CYAMEMAZINE
     Indication: Product used for unknown indication
     Route: 065
  4. TRIMEPRAZINE [Suspect]
     Active Substance: TRIMEPRAZINE
     Indication: Anxiety
     Route: 048
     Dates: end: 20231208
  5. BUSPIRONE HYDROCHLORIDE [Suspect]
     Active Substance: BUSPIRONE HYDROCHLORIDE
     Indication: Anxiety
     Dosage: BUSPIRONE (CHLORHYDRATE DE)
     Route: 048
     Dates: end: 20231208
  6. LOXAPINE [Suspect]
     Active Substance: LOXAPINE
     Indication: Product used for unknown indication
     Route: 048
     Dates: start: 20231206

REACTIONS (2)
  - Dyskinesia [Recovered/Resolved]
  - Torticollis [Recovered/Resolved]

NARRATIVE: CASE EVENT DATE: 20231206
